FAERS Safety Report 10484863 (Version 2)
Quarter: 2014Q3

REPORT INFORMATION
  Report Type: Spontaneous
  Country: US (occurrence: US)
  Receive Date: 20140930
  Receipt Date: 20140930
  Transmission Date: 20150326
  Serious: Yes (Hospitalization, Other)
  Sender: FDA-Public Use
  Company Number: PHHY2014US118113

PATIENT
  Sex: Male

DRUGS (11)
  1. COLACE [Suspect]
     Active Substance: DOCUSATE SODIUM
     Dosage: UNK UKN, UNK
  2. PARACETAMOL [Suspect]
     Active Substance: ACETAMINOPHEN
     Dosage: UNK UKN, UNK
  3. VITAMIN D [Suspect]
     Active Substance: CHOLECALCIFEROL
     Dosage: UNK UKN, UNK
  4. VITAMIN C [Suspect]
     Active Substance: ASCORBIC ACID
     Dosage: UNK UKN, UNK
  5. LASIX [Suspect]
     Active Substance: FUROSEMIDE
     Dosage: UNK UKN, UNK
  6. BACLOFEN INTRATHECAL [Suspect]
     Active Substance: BACLOFEN
     Indication: MUSCLE SPASTICITY
     Dosage: 1501.1 UG, PER DAY
     Route: 037
  7. FENTANYL. [Suspect]
     Active Substance: FENTANYL
     Dosage: 7.505 UG, PER DAY
     Route: 037
  8. INSULIN [Suspect]
     Active Substance: INSULIN NOS
     Dosage: UNK UKN, UNK
  9. CLONIDINE. [Suspect]
     Active Substance: CLONIDINE
     Dosage: 30.2 UG, PER DAY
     Route: 037
  10. BACLOFEN. [Suspect]
     Active Substance: BACLOFEN
     Dosage: UNK UKN, UNK
     Route: 048
  11. OMEGA 3 [Suspect]
     Active Substance: OMEGA-3 FATTY ACIDS
     Dosage: UNK UKN, UNK

REACTIONS (2)
  - Mental status changes [Unknown]
  - Somnolence [Unknown]
